FAERS Safety Report 7458926-0 (Version None)
Quarter: 2011Q2

REPORT INFORMATION
  Report Type: 
  Country: None (occurrence: None)
  Receive Date: 20110504
  Receipt Date: 20110503
  Transmission Date: 20111010
  Serious: Yes (Other)
  Sender: FDA-Public Use
  Company Number: DE-ABBOTT-11P-062-0723234-00

PATIENT
  Sex: Male
  Weight: 95 kg

DRUGS (1)
  1. HUMIRA [Suspect]
     Indication: PSORIATIC ARTHROPATHY
     Route: 058
     Dates: start: 20090501

REACTIONS (3)
  - RENAL COLIC [None]
  - NEPHROLITHIASIS [None]
  - NEPHROTIC SYNDROME [None]
